FAERS Safety Report 5473951-7 (Version None)
Quarter: 2007Q3

REPORT INFORMATION
  Report Type: 
  Country: None (occurrence: None)
  Receive Date: 20070831
  Receipt Date: 20070628
  Transmission Date: 20080115
  Serious: No
  Sender: FDA-Public Use
  Company Number: 230647

PATIENT
  Age: 76 Year
  Sex: Female
  Weight: 65.8 kg

DRUGS (2)
  1. LUCENTIS [Suspect]
     Indication: MACULAR DEGENERATION
     Dosage: 0.5 MG, INTRAOCULAR
     Route: 031
     Dates: start: 20060907
  2. XALATAN [Concomitant]

REACTIONS (2)
  - LACRIMATION INCREASED [None]
  - NAUSEA [None]
